FAERS Safety Report 14620115 (Version 2)
Quarter: 2018Q2

REPORT INFORMATION
  Report Type: Spontaneous
  Country: NL (occurrence: NL)
  Receive Date: 20180309
  Receipt Date: 20180409
  Transmission Date: 20180711
  Serious: Yes (Life-Threatening, Hospitalization)
  Sender: FDA-Public Use
  Company Number: NL-BAYER-2018-040682

PATIENT
  Age: 71 Year

DRUGS (3)
  1. ULTRAVIST [Suspect]
     Active Substance: IOPROMIDE
     Indication: NON-SMALL CELL LUNG CANCER
     Dosage: 80 ML, ONCE
     Dates: start: 20180205, end: 20180205
  2. ULTRAVIST [Suspect]
     Active Substance: IOPROMIDE
     Indication: CHEST PAIN
  3. ULTRAVIST [Suspect]
     Active Substance: IOPROMIDE
     Indication: COMPUTERISED TOMOGRAM THORAX

REACTIONS (13)
  - Angioedema [None]
  - Generalised erythema [None]
  - Intensive care [None]
  - Blood pressure decreased [None]
  - Swollen tongue [None]
  - Lip swelling [None]
  - Anaphylactic shock [None]
  - Wheezing [None]
  - Urticaria [None]
  - Pyrexia [None]
  - Vomiting [None]
  - Tryptase decreased [None]
  - Resuscitation [None]

NARRATIVE: CASE EVENT DATE: 20180205
